FAERS Safety Report 7423722-7 (Version None)
Quarter: 2011Q2

REPORT INFORMATION
  Report Type: 
  Country: None (occurrence: None)
  Receive Date: 20110411
  Receipt Date: 20110329
  Transmission Date: 20111010
  Serious: Yes (Disabling)
  Sender: FDA-Public Use
  Company Number: 2011-0817

PATIENT
  Age: 57 Year
  Sex: Female

DRUGS (2)
  1. LOPERAMIDE [Concomitant]
  2. SOMATULINE DEPOT [Suspect]
     Indication: CARCINOID TUMOUR
     Dosage: 90 MG (90 MG,1 IN 28 D) SUBCUTANEOUS
     Route: 058
     Dates: start: 20110201

REACTIONS (3)
  - INJECTION SITE PAIN [None]
  - DIARRHOEA [None]
  - HEADACHE [None]
